FAERS Safety Report 7680562-1 (Version None)
Quarter: 2011Q3

REPORT INFORMATION
  Report Type: 
  Country: None (occurrence: None)
  Receive Date: 20110812
  Receipt Date: 20110728
  Transmission Date: 20111222
  Serious: Yes (Life-Threatening, Other)
  Sender: FDA-Public Use
  Company Number: JP-ASTRAZENECA-2009SE08629

PATIENT
  Age: 81 Year
  Sex: Female

DRUGS (6)
  1. AMPICILLIN SODIUM [Suspect]
     Indication: PYREXIA
  2. MEROPENEM [Suspect]
     Indication: DIARRHOEA
  3. AMPICILLIN SODIUM [Suspect]
     Indication: DIARRHOEA
  4. CEFAZOLIN [Suspect]
     Route: 048
  5. CEFACAPENE PIVOXIL HYDROCHLORIDE [Suspect]
  6. MEROPENEM [Suspect]
     Indication: PYREXIA

REACTIONS (2)
  - SEPTIC SHOCK [None]
  - COLITIS [None]
